FAERS Safety Report 4498595-5 (Version None)
Quarter: 2004Q4

REPORT INFORMATION
  Report Type: 
  Country: None (occurrence: None)
  Receive Date: 20041108
  Receipt Date: 20041102
  Transmission Date: 20050328
  Serious: Yes (Hospitalization)
  Sender: FDA-Public Use
  Company Number: 2004238164US

PATIENT
  Age: 63 Year
  Sex: Male
  Weight: 97.5 kg

DRUGS (5)
  1. BEXTRA [Suspect]
     Indication: FIBROMYALGIA
     Dosage: QD ORAL
     Route: 048
     Dates: start: 20041001, end: 20041001
  2. ADVAIR [Concomitant]
  3. SINGULAIR [Concomitant]
  4. MULTIVITAMIN [Concomitant]
  5. ATENOLOL [Concomitant]

REACTIONS (6)
  - ANAPHYLACTIC SHOCK [None]
  - APHONIA [None]
  - EYE PAIN [None]
  - HOARSENESS [None]
  - MUSCLE INJURY [None]
  - RESPIRATORY DISORDER [None]
